FAERS Safety Report 8277288-2 (Version None)
Quarter: 2012Q2

REPORT INFORMATION
  Report Type: 
  Country: None (occurrence: None)
  Receive Date: 20120412
  Receipt Date: 20120406
  Transmission Date: 20120825
  Serious: Yes (Other)
  Sender: FDA-Public Use
  Company Number: US-GLAXOSMITHKLINE-A0972665A

PATIENT
  Age: 26 Year
  Sex: Female

DRUGS (4)
  1. MULTI-VITAMINS [Concomitant]
  2. VENTOLIN [Suspect]
     Indication: CHEST DISCOMFORT
     Dosage: 2PUFF AS REQUIRED
     Route: 055
     Dates: start: 20100101
  3. ALBUTEROL [Concomitant]
  4. DULERA ORAL INHALATION [Concomitant]

REACTIONS (2)
  - CHOKING [None]
  - MATERNAL EXPOSURE DURING PREGNANCY [None]
